FAERS Safety Report 8097795-5 (Version None)
Quarter: 2012Q1

REPORT INFORMATION
  Report Type: 
  Country: None (occurrence: None)
  Receive Date: 20120128
  Receipt Date: 20110718
  Transmission Date: 20120608
  Serious: No
  Sender: FDA-Public Use
  Company Number: US-ABBOTT-11P-163-0839984-00

PATIENT
  Age: 77 Year
  Sex: Female

DRUGS (8)
  1. HUMIRA [Suspect]
     Indication: RHEUMATOID ARTHRITIS
     Dates: start: 20110501, end: 20110613
  2. SYNTHROID [Concomitant]
     Indication: PRODUCT USED FOR UNKNOWN INDICATION
     Dosage: MONDAY,WEDNESDAY,FRIDAY
  3. VITAMIN D [Concomitant]
     Indication: PRODUCT USED FOR UNKNOWN INDICATION
     Dosage: DAILY
  4. ZOCOR [Concomitant]
     Indication: PRODUCT USED FOR UNKNOWN INDICATION
     Dosage: 40 MG AT NIGHT
  5. ATENOLOL [Concomitant]
     Indication: PRODUCT USED FOR UNKNOWN INDICATION
     Dosage: 25 MG DAILY
  6. LORAZEPAM [Concomitant]
     Indication: ANXIETY
     Dosage: 1 MG AT NIGHT
  7. SYNTHROID [Concomitant]
     Dosage: SUNDAY, TUESDAY, THRUSDAY, SATURDAY
  8. LORAZEPAM [Concomitant]
     Dosage: 1 MG AT PRN

REACTIONS (4)
  - MALAISE [None]
  - ASTHENIA [None]
  - RASH GENERALISED [None]
  - FATIGUE [None]
